FAERS Safety Report 21256164 (Version 1)
Quarter: 2022Q3

REPORT INFORMATION
  Report Type: Spontaneous
  Country: FR (occurrence: FR)
  Receive Date: 20220825
  Receipt Date: 20220825
  Transmission Date: 20221027
  Serious: Yes (Other)
  Sender: FDA-Public Use
  Company Number: FR-BRISTOL-MYERS SQUIBB COMPANY-2022-036275

PATIENT
  Age: 69 Year
  Sex: Female

DRUGS (1)
  1. ORENCIA [Suspect]
     Active Substance: ABATACEPT
     Indication: Rheumatoid arthritis
     Route: 058
     Dates: start: 20210804, end: 20220505

REACTIONS (4)
  - Cough [Unknown]
  - Dyspnoea [Unknown]
  - Tinnitus [Unknown]
  - Superficial inflammatory dermatosis [Unknown]

NARRATIVE: CASE EVENT DATE: 20210101
